FAERS Safety Report 23060127 (Version 1)
Quarter: 2023Q4

REPORT INFORMATION
  Report Type: Spontaneous
  Country: US (occurrence: US)
  Receive Date: 20231012
  Receipt Date: 20231012
  Transmission Date: 20240109
  Serious: Yes (Hospitalization)
  Sender: FDA-Public Use
  Company Number: US-SPECGX-T202302007

PATIENT
  Age: 35 Year
  Sex: Female
  Weight: 68 kg

DRUGS (5)
  1. ACETAMINOPHEN\HYDROCODONE [Suspect]
     Active Substance: ACETAMINOPHEN\HYDROCODONE
     Indication: Product used for unknown indication
     Dosage: 10-325 MG FOUR TIMES IN THE 24 HR
     Route: 065
  2. COCAINE [Suspect]
     Active Substance: COCAINE
     Indication: Product used for unknown indication
     Dosage: UNK
     Route: 065
  3. CANNABIS SATIVA SUBSP. INDICA TOP [Suspect]
     Active Substance: CANNABIS SATIVA SUBSP. INDICA TOP
     Indication: Product used for unknown indication
     Dosage: UNK
     Route: 065
  4. DIAZEPAM [Suspect]
     Active Substance: DIAZEPAM
     Indication: Product used for unknown indication
     Dosage: 2 MILLIGRAM (30 TABLETS)
     Route: 065
  5. HEROIN [Suspect]
     Active Substance: DIAMORPHINE
     Indication: Product used for unknown indication
     Dosage: UNK
     Route: 042

REACTIONS (14)
  - Electrocardiogram QT shortened [Unknown]
  - White blood cell count increased [Unknown]
  - Coronavirus infection [Unknown]
  - Haemoglobin decreased [Unknown]
  - Haematocrit decreased [Unknown]
  - Hyperglycaemia [Unknown]
  - Blood lactic acid increased [Unknown]
  - Hypoglycaemia [Recovered/Resolved]
  - Loss of consciousness [Unknown]
  - Tachycardia [Unknown]
  - Blood pressure decreased [Unknown]
  - Unresponsive to stimuli [Unknown]
  - Accidental overdose [Unknown]
  - Substance use [Unknown]
